FAERS Safety Report 16841795 (Version 2)
Quarter: 2019Q4

REPORT INFORMATION
  Report Type: Spontaneous
  Country: US (occurrence: US)
  Receive Date: 20190923
  Receipt Date: 20191004
  Transmission Date: 20200122
  Serious: No
  Sender: FDA-Public Use
  Company Number: US-GILEAD-2019-0429953

PATIENT
  Age: 60 Year
  Sex: Female

DRUGS (6)
  1. VITAMIN B COMPLEX [Concomitant]
     Active Substance: CYANOCOBALAMIN\DEXPANTHENOL\NIACINAMIDE\PYRIDOXINE HYDROCHLORIDE\RIBOFLAVIN 5^-PHOSPHATE SODIUM\THIAMINE HYDROCHLORIDE\VITAMIN B COMPLEX
     Dosage: UNKNOWN
  2. FISH OIL [Concomitant]
     Active Substance: FISH OIL
     Dosage: UNKNOWN
  3. SOFOSBUVIR;VELPATASVIR [Suspect]
     Active Substance: SOFOSBUVIR\VELPATASVIR
     Indication: CHRONIC HEPATITIS C
     Dosage: 1 DOSAGE FORM, QD
     Route: 048
     Dates: start: 201907
  4. IBUPROFEN. [Concomitant]
     Active Substance: IBUPROFEN
     Dosage: UNKNOWN
  5. CALCIUM CARBONATE. [Suspect]
     Active Substance: CALCIUM CARBONATE
     Indication: PRODUCT USED FOR UNKNOWN INDICATION
     Dosage: UNKNOWN
     Route: 065
  6. MULTIVITAMINS [VITAMINS NOS] [Concomitant]
     Active Substance: VITAMINS
     Indication: PRODUCT USED FOR UNKNOWN INDICATION
     Dosage: UNKNOWN
     Route: 065

REACTIONS (11)
  - Pyrexia [Unknown]
  - Insomnia [Not Recovered/Not Resolved]
  - Fatigue [Not Recovered/Not Resolved]
  - Swelling [Unknown]
  - Abdominal distension [Unknown]
  - Headache [Not Recovered/Not Resolved]
  - Hepatic enzyme increased [Unknown]
  - Blood cholesterol increased [Unknown]
  - Diarrhoea [Unknown]
  - Abdominal pain upper [Unknown]
  - Arthralgia [Unknown]
